FAERS Safety Report 8382947-7 (Version None)
Quarter: 2012Q2

REPORT INFORMATION
  Report Type: 
  Country: None (occurrence: None)
  Receive Date: 20120524
  Receipt Date: 20120511
  Transmission Date: 20120825
  Serious: Yes (Other)
  Sender: FDA-Public Use
  Company Number: US-JNJFOC-20120307287

PATIENT

DRUGS (7)
  1. LIPITOR [Concomitant]
  2. IMURAN [Concomitant]
     Indication: COLITIS ULCERATIVE
     Route: 048
  3. MIRALAX [Concomitant]
     Indication: CONSTIPATION
     Route: 048
  4. MEGACE [Concomitant]
     Indication: WEIGHT INCREASED
     Route: 048
  5. ASPIRIN [Concomitant]
  6. REMICADE [Suspect]
     Indication: COLITIS ULCERATIVE
     Route: 042
     Dates: start: 20110103, end: 20120101
  7. QUESTRAN [Concomitant]
     Indication: DIARRHOEA
     Route: 048

REACTIONS (1)
  - NEOPLASM MALIGNANT [None]
